FAERS Safety Report 11183268 (Version 1)
Quarter: 2015Q2

REPORT INFORMATION
  Report Type: Spontaneous
  Country: US (occurrence: US)
  Receive Date: 20150611
  Receipt Date: 20150611
  Transmission Date: 20150821
  Serious: No
  Sender: FDA-Public Use
  Company Number: US-ASTRAZENECA-2015SE54204

PATIENT
  Age: 26935 Day
  Sex: Female
  Weight: 53.5 kg

DRUGS (4)
  1. TYLENOL [Concomitant]
     Active Substance: ACETAMINOPHEN
  2. NEXIUM [Suspect]
     Active Substance: ESOMEPRAZOLE MAGNESIUM
     Indication: GASTRIC ULCER
     Route: 048
     Dates: start: 2001
  3. UNSPECIFIED PPI [Suspect]
     Active Substance: UNSPECIFIED INGREDIENT
     Route: 065
  4. NEXIUM [Suspect]
     Active Substance: ESOMEPRAZOLE MAGNESIUM
     Indication: GASTRIC ULCER
     Route: 048
     Dates: start: 20150525, end: 20150530

REACTIONS (10)
  - Musculoskeletal discomfort [Unknown]
  - Hypotension [Unknown]
  - Intentional product misuse [Unknown]
  - Pain [Unknown]
  - Arthralgia [Unknown]
  - Urine output increased [Unknown]
  - Dyspnoea [Unknown]
  - Gastric ulcer [Unknown]
  - Hypoaesthesia [Unknown]
  - Cardiac disorder [Unknown]

NARRATIVE: CASE EVENT DATE: 20150522
